FAERS Safety Report 8500274-1 (Version None)
Quarter: 2012Q3

REPORT INFORMATION
  Report Type: 
  Country: None (occurrence: None)
  Receive Date: 20120710
  Receipt Date: 20120704
  Transmission Date: 20120928
  Serious: Yes (Other)
  Sender: FDA-Public Use
  Company Number: JP-SANOFI-AVENTIS-2012SA048393

PATIENT

DRUGS (3)
  1. DOCETAXEL [Suspect]
     Dosage: DOSE: 50 MG/M2 ON DAY 1 EVERY 3-4 WEEKS (1ST COURSE)
     Route: 065
  2. FLUOROURACIL [Suspect]
     Dosage: DOSE: 500 MG/M2 ON DAY 1-5 EVERY 3-4 WEEKS (1ST COURSE)
     Route: 065
  3. CISPLATIN [Suspect]
     Dosage: DOSE: 12 MG/M2 ON DAY 1-5 EVERY 3-4 WEEKS (1ST COURSE)
     Route: 065

REACTIONS (1)
  - CARDIAC ARREST [None]
